FAERS Safety Report 7006707-4 (Version None)
Quarter: 2010Q3

REPORT INFORMATION
  Report Type: 
  Country: None (occurrence: None)
  Receive Date: 20100922
  Receipt Date: 20100913
  Transmission Date: 20110219
  Serious: No
  Sender: FDA-Public Use
  Company Number: US-BIOGENIDEC-2010BI031016

PATIENT
  Age: 35 Year
  Sex: Female

DRUGS (19)
  1. TYSABRI [Suspect]
     Indication: MULTIPLE SCLEROSIS
     Route: 042
     Dates: start: 20080507
  2. TYSABRI [Suspect]
     Route: 042
     Dates: start: 20080507
  3. ACIPHEX [Concomitant]
  4. DDAVP [Concomitant]
  5. DITROPAN XL [Concomitant]
  6. FLOMAX [Concomitant]
  7. INVEGA ER [Concomitant]
  8. KLONOPIN [Concomitant]
  9. PAXIL [Concomitant]
  10. PROVIGIL [Concomitant]
  11. LEVOXYL [Concomitant]
  12. TOPAMAX [Concomitant]
  13. CALCIUM [Concomitant]
  14. MULTI-VITAMIN [Concomitant]
  15. STOOL SOFTENER (NOS) [Concomitant]
  16. MIRALAX [Concomitant]
  17. MILK OF MAGNESIA TAB [Concomitant]
  18. MAGNESIUM CITRATE [Concomitant]
  19. DULCOLAX [Concomitant]

REACTIONS (1)
  - BIPOLAR DISORDER [None]
